FAERS Safety Report 13428857 (Version 1)
Quarter: 2017Q2

REPORT INFORMATION
  Report Type: Spontaneous
  Country: US (occurrence: US)
  Receive Date: 20170411
  Receipt Date: 20170411
  Transmission Date: 20170830
  Serious: Yes (Hospitalization, Other)
  Sender: FDA-Public Use
  Company Number: US-NAPPMUNDI-USA-2017-0137748

PATIENT
  Age: 65 Year
  Sex: Female

DRUGS (6)
  1. OXYCONTIN [Suspect]
     Active Substance: OXYCODONE HYDROCHLORIDE
     Indication: PAIN
     Dosage: 15 MG, BID
     Route: 048
     Dates: start: 2015
  2. OXYCODONE HYDROCHLORIDE. [Suspect]
     Active Substance: OXYCODONE HYDROCHLORIDE
     Dosage: 10 MG, Q4H PRN
     Route: 048
     Dates: start: 201703, end: 201703
  3. OXYCODONE HYDROCHLORIDE. [Suspect]
     Active Substance: OXYCODONE HYDROCHLORIDE
     Dosage: 5 MG, Q4H PRN
     Route: 048
     Dates: start: 201703, end: 201703
  4. OXYCODONE HYDROCHLORIDE. [Suspect]
     Active Substance: OXYCODONE HYDROCHLORIDE
     Indication: BREAKTHROUGH PAIN
     Dosage: 15 MG, Q4H PRN
     Route: 048
     Dates: start: 20170311, end: 20170312
  5. OXYCODONE HCL CR TABLETS (SIMILAR TO NDA 22-272) [Suspect]
     Active Substance: OXYCODONE HYDROCHLORIDE
     Indication: PAIN
     Dosage: 30 MG, Q4H PRN
     Route: 048
     Dates: start: 20170312, end: 20170312
  6. OXYCODONE HYDROCHLORIDE. [Suspect]
     Active Substance: OXYCODONE HYDROCHLORIDE
     Dosage: 5 MG, PRN
     Route: 048
     Dates: start: 2015

REACTIONS (9)
  - Wrong technique in product usage process [Unknown]
  - Facial paralysis [Recovered/Resolved]
  - Knee arthroplasty [Unknown]
  - Adverse drug reaction [Recovered/Resolved]
  - Atrial fibrillation [Recovered/Resolved]
  - Aphasia [Recovered/Resolved]
  - Amnesia [Recovered/Resolved]
  - Inadequate analgesia [Unknown]
  - Overdose [Recovered/Resolved]

NARRATIVE: CASE EVENT DATE: 20170310
